FAERS Safety Report 7727241-X (Version None)
Quarter: 2011Q3

REPORT INFORMATION
  Report Type: 
  Country: None (occurrence: None)
  Receive Date: 20110902
  Receipt Date: 20110823
  Transmission Date: 20111222
  Serious: Yes (Other)
  Sender: FDA-Public Use
  Company Number: US-BAYER-200829294NA

PATIENT
  Sex: Male
  Weight: 87.528 kg

DRUGS (26)
  1. WARFARIN SODIUM [Concomitant]
  2. FUROSEMIDE [Concomitant]
  3. OMNISCAN [Suspect]
     Indication: PRODUCT USED FOR UNKNOWN INDICATION
  4. MULTIHANCE [Suspect]
     Indication: PRODUCT USED FOR UNKNOWN INDICATION
  5. PROGRAF [Concomitant]
  6. CELLCEPT [Concomitant]
  7. NORVASC [Concomitant]
  8. MAGNEVIST [Suspect]
     Indication: NUCLEAR MAGNETIC RESONANCE IMAGING
     Dosage: UNK UNK, ONCE
     Dates: start: 20020328, end: 20020328
  9. LANTUS [Concomitant]
  10. SYNTHROID [Concomitant]
  11. JANUVIA [Concomitant]
  12. EPOGEN [Concomitant]
  13. GLIPIZIDE [Concomitant]
  14. PREDNISONE [Concomitant]
  15. IRON SULFATETHIAMIN COMPOUND TAB [Concomitant]
  16. ALLOPURINOL [Concomitant]
  17. OPTIMARK [Suspect]
     Indication: PRODUCT USED FOR UNKNOWN INDICATION
  18. COZAAR [Concomitant]
  19. AMLODIPINE BESYLATE [Concomitant]
  20. PROTONIX [Concomitant]
  21. ROCALTROL [Concomitant]
  22. TOPROL-XL [Concomitant]
  23. LIPITOR [Concomitant]
  24. FISH OIL [Concomitant]
  25. COLCHICINE [Concomitant]
  26. PROHANCE [Suspect]
     Indication: PRODUCT USED FOR UNKNOWN INDICATION

REACTIONS (43)
  - ANXIETY [None]
  - PRURITUS [None]
  - CONTINUOUS HAEMODIAFILTRATION [None]
  - RENAL FAILURE ACUTE [None]
  - LYMPHOCELE [None]
  - DIABETIC KETOACIDOSIS [None]
  - EMOTIONAL DISTRESS [None]
  - JOINT EFFUSION [None]
  - BACK PAIN [None]
  - JOINT SWELLING [None]
  - JOINT INSTABILITY [None]
  - MUSCLE SPASMS [None]
  - CELLULITIS [None]
  - HEART TRANSPLANT REJECTION [None]
  - ARTHRALGIA [None]
  - MOBILITY DECREASED [None]
  - SKIN ULCER [None]
  - MENTAL DISORDER [None]
  - DEEP VEIN THROMBOSIS [None]
  - PERIRECTAL ABSCESS [None]
  - RESTRICTIVE PULMONARY DISEASE [None]
  - WEIGHT DECREASED [None]
  - MUSCULAR WEAKNESS [None]
  - RASH [None]
  - OSTEOARTHRITIS [None]
  - SKIN INDURATION [None]
  - PAIN [None]
  - HEART TRANSPLANT [None]
  - HAEMATOMA [None]
  - TYPE 2 DIABETES MELLITUS [None]
  - VISION BLURRED [None]
  - DECREASED APPETITE [None]
  - VENOUS INSUFFICIENCY [None]
  - CHONDROCALCINOSIS PYROPHOSPHATE [None]
  - TACHYCARDIA [None]
  - NEPHROGENIC SYSTEMIC FIBROSIS [None]
  - INJURY [None]
  - FATIGUE [None]
  - KIDNEY SMALL [None]
  - GOUTY ARTHRITIS [None]
  - GENERAL PHYSICAL HEALTH DETERIORATION [None]
  - DISCOMFORT [None]
  - NEPHROSCLEROSIS [None]
